FAERS Safety Report 19011793 (Version 1)
Quarter: 2021Q1

REPORT INFORMATION
  Report Type: Spontaneous
  Country: US (occurrence: US)
  Receive Date: 20210315
  Receipt Date: 20210315
  Transmission Date: 20210420
  Serious: Yes (Other)
  Sender: FDA-Public Use
  Company Number: US-ANIPHARMA-2021-US-005211

PATIENT
  Sex: Female

DRUGS (9)
  1. XELODA [Concomitant]
     Active Substance: CAPECITABINE
     Route: 065
  2. TAXOL [Concomitant]
     Active Substance: PACLITAXEL
     Route: 065
  3. TUKYSA [Concomitant]
     Active Substance: TUCATINIB
     Route: 065
  4. HERCEPTIN [Concomitant]
     Active Substance: TRASTUZUMAB
     Route: 065
  5. KADCYLA [Concomitant]
     Active Substance: ADO-TRASTUZUMAB EMTANSINE
     Route: 065
  6. PERJETA [Concomitant]
     Active Substance: PERTUZUMAB
     Route: 065
  7. PACLITAXEL. [Concomitant]
     Active Substance: PACLITAXEL
     Route: 065
  8. ARIMIDEX [Suspect]
     Active Substance: ANASTROZOLE
     Indication: PRODUCT USED FOR UNKNOWN INDICATION
     Route: 065
     Dates: start: 201710
  9. LAPATINIB [Concomitant]
     Active Substance: LAPATINIB
     Route: 065

REACTIONS (15)
  - Confusional state [Unknown]
  - Rash vesicular [Unknown]
  - Hypophagia [Unknown]
  - Breast disorder [Unknown]
  - Metastases to central nervous system [Unknown]
  - Upper respiratory tract infection [Unknown]
  - Disease progression [Unknown]
  - Chest discomfort [Unknown]
  - Muscular weakness [Unknown]
  - Dizziness [Unknown]
  - Fatigue [Unknown]
  - Hypertension [Unknown]
  - Rash [Unknown]
  - Vasogenic cerebral oedema [Unknown]
  - Adrenal disorder [Unknown]
